FAERS Safety Report 18273034 (Version 1)
Quarter: 2020Q3

REPORT INFORMATION
  Report Type: Spontaneous
  Country: US (occurrence: US)
  Receive Date: 20200916
  Receipt Date: 20200916
  Transmission Date: 20201103
  Serious: Yes (Death)
  Sender: FDA-Public Use
  Company Number: None

PATIENT
  Age: 65 Year
  Sex: Male

DRUGS (13)
  1. MYCOPHENOLIC [Suspect]
     Active Substance: MYCOPHENOLIC ACID
     Indication: RENAL TRANSPLANT
     Route: 048
     Dates: start: 20180611, end: 20200915
  2. MYCOPHENOLIC [Suspect]
     Active Substance: MYCOPHENOLIC ACID
     Indication: RENAL TRANSPLANT
     Route: 048
     Dates: start: 20181108, end: 20200915
  3. TACROLIMUS 1MG [Concomitant]
     Active Substance: TACROLIMUS
     Dates: start: 20180611, end: 20200915
  4. LEVOTHYROXINE 50MCG [Concomitant]
     Active Substance: LEVOTHYROXINE
     Dates: start: 20190419, end: 20200915
  5. PANTOPRAZOLE 40MG [Concomitant]
     Active Substance: PANTOPRAZOLE SODIUM
     Dates: start: 20180612, end: 20200915
  6. TACROLIMUS 0.5MG [Concomitant]
     Active Substance: TACROLIMUS
     Dates: start: 20180611, end: 20200129
  7. PRAVASTATIN. [Concomitant]
     Active Substance: PRAVASTATIN
     Dates: start: 20181206, end: 20200915
  8. PREDNISONE 5MG [Concomitant]
     Active Substance: PREDNISONE
     Dates: start: 20180611, end: 20200915
  9. DAILYVITE [Concomitant]
     Dates: start: 20190119, end: 20200915
  10. TAMSULOSIN 0.4MG [Concomitant]
     Active Substance: TAMSULOSIN
     Dates: start: 20190119, end: 20200915
  11. KEFLEX [Concomitant]
     Active Substance: CEPHALEXIN
     Dates: start: 20200713, end: 20200723
  12. MAGOXIDE 400MG [Concomitant]
     Dates: start: 20180625, end: 20200915
  13. FINESTERIDE 5MG [Concomitant]
     Dates: start: 20200402, end: 20200829

REACTIONS (1)
  - Death [None]

NARRATIVE: CASE EVENT DATE: 20200915
